FAERS Safety Report 8068183-2 (Version None)
Quarter: 2012Q1

REPORT INFORMATION
  Report Type: 
  Country: None (occurrence: None)
  Receive Date: 20120124
  Receipt Date: 20110902
  Transmission Date: 20120608
  Serious: No
  Sender: FDA-Public Use
  Company Number: US-AMGEN-USASP2011045166

PATIENT
  Age: 60 Year
  Sex: Female

DRUGS (12)
  1. BOTOX [Concomitant]
     Indication: DYSTONIA
     Dosage: UNK
  2. ASTELIN                            /00085801/ [Concomitant]
     Indication: HYPERSENSITIVITY
     Dosage: UNK
  3. FISH OIL [Concomitant]
     Dosage: UNK
  4. PROLIA [Suspect]
     Indication: OSTEOPOROSIS POSTMENOPAUSAL
     Dosage: 60 MG, Q6MO
     Dates: start: 20110503
  5. BACLOFEN [Concomitant]
     Indication: MUSCLE SPASMS
     Dosage: 1 MG, QD
  6. NASACORT [Concomitant]
     Indication: HYPERSENSITIVITY
     Dosage: UNK
  7. SINGULAIR [Concomitant]
     Indication: HYPERSENSITIVITY
     Dosage: UNK
  8. DIOVAN [Concomitant]
     Dosage: UNK
  9. VITAMIN D [Concomitant]
     Dosage: UNK
  10. PILOCARPINE                        /00043502/ [Concomitant]
     Indication: DRY EYE
     Dosage: UNK
  11. FLAXSEED OIL [Concomitant]
     Dosage: UNK
  12. CALCIUM WITH VITAMIN D             /00944201/ [Concomitant]
     Dosage: UNK

REACTIONS (7)
  - ECZEMA [None]
  - SINUS DISORDER [None]
  - SKIN HAEMORRHAGE [None]
  - SCAR [None]
  - EYE INFECTION [None]
  - PRURITUS [None]
  - RASH [None]
